FAERS Safety Report 15923590 (Version 1)
Quarter: 2019Q1

REPORT INFORMATION
  Report Type: Spontaneous
  Country: NL (occurrence: NL)
  Receive Date: 20190206
  Receipt Date: 20190206
  Transmission Date: 20190417
  Serious: Yes (Other)
  Sender: FDA-Public Use
  Company Number: NL-ASTRAZENECA-2019SE21364

PATIENT
  Sex: Male
  Weight: 81 kg

DRUGS (5)
  1. DICLOFENAC [Concomitant]
     Active Substance: DICLOFENAC
     Dosage: 4 X PER DAG 1 TABLET
     Dates: start: 2008
  2. VENLAFAXINE [Concomitant]
     Active Substance: VENLAFAXINE HYDROCHLORIDE
     Dosage: 1 X PER DAG 1 CAPSULE
  3. ENTOCORT 3 MG [Concomitant]
     Dosage: 1 X PER DAG 0-3 CAPSULES
     Dates: start: 20180125
  4. OMEPRAZOL MAAGSAPRESISTENTE CAPSULE, 20 MG (MILLIGRAM) [Suspect]
     Active Substance: OMEPRAZOLE SODIUM
     Indication: PROPHYLAXIS
     Dosage: 1 X PER DAG
     Route: 048
     Dates: start: 20180125, end: 201806
  5. PARACETAMOL [Concomitant]
     Active Substance: ACETAMINOPHEN
     Dosage: 4 X PER DAG 1 TABLET
     Dates: start: 2018

REACTIONS (2)
  - Depressed mood [Recovered/Resolved]
  - Suicidal ideation [Recovered/Resolved]
